FAERS Safety Report 7481711-0 (Version None)
Quarter: 2011Q2

REPORT INFORMATION
  Report Type: 
  Country: None (occurrence: None)
  Receive Date: 20110516
  Receipt Date: 20110510
  Transmission Date: 20111010
  Serious: Yes (Hospitalization)
  Sender: FDA-Public Use
  Company Number: A0782768A

PATIENT
  Age: 53 Year
  Sex: Male
  Weight: 94.5 kg

DRUGS (10)
  1. ALTACE [Concomitant]
  2. ACCURETIC [Concomitant]
  3. AVANDIA [Suspect]
     Dosage: 2MG TWICE PER DAY
     Route: 048
     Dates: start: 20050301, end: 20080401
  4. ZOCOR [Concomitant]
  5. LOPRESSOR [Concomitant]
  6. PLAVIX [Concomitant]
  7. AVANDAMET [Suspect]
     Route: 065
     Dates: start: 20040101
  8. GLUCOPHAGE [Concomitant]
  9. METFORMIN HCL [Concomitant]
  10. LIPITOR [Concomitant]

REACTIONS (3)
  - MYOCARDIAL INFARCTION [None]
  - MYOCARDIAL ISCHAEMIA [None]
  - VENTRICULAR FIBRILLATION [None]
